FAERS Safety Report 4617027-7 (Version None)
Quarter: 2005Q1

REPORT INFORMATION
  Report Type: 
  Country: None (occurrence: None)
  Receive Date: 20050321
  Receipt Date: 20050308
  Transmission Date: 20050727
  Serious: Yes (Death, Hospitalization)
  Sender: FDA-Public Use
  Company Number: HQWYE891508MAR05

PATIENT
  Age: 78 Year
  Sex: Female

DRUGS (4)
  1. AMIODARONE HCL [Suspect]
     Indication: SYNCOPE
     Dosage: 200 MG 1X PER 1 DAY ORAL
     Route: 048
     Dates: start: 20031101
  2. AMIODARONE HCL [Suspect]
     Indication: TACHYARRHYTHMIA
     Dosage: 200 MG 1X PER 1 DAY ORAL
     Route: 048
     Dates: start: 20031101
  3. BLOPRESS                    (CANDESARTAN CILEXETIL) [Concomitant]
  4. CARDIOASPIRIN                         (ACETYLSALICYLIC ACID) [Concomitant]

REACTIONS (12)
  - ANAEMIA [None]
  - ANOREXIA [None]
  - AORTIC VALVE INCOMPETENCE [None]
  - ASTHENIA [None]
  - BLADDER NEOPLASM [None]
  - BLOOD PRESSURE INCREASED [None]
  - CARDIOPULMONARY FAILURE [None]
  - HAEMATURIA [None]
  - MITRAL VALVE INCOMPETENCE [None]
  - PNEUMONITIS [None]
  - TACHYCARDIA [None]
  - WEIGHT DECREASED [None]
